FAERS Safety Report 10096229 (Version 1)
Quarter: 2014Q2

REPORT INFORMATION
  Report Type: Spontaneous
  Country: US (occurrence: US)
  Receive Date: 20140422
  Receipt Date: 20140422
  Transmission Date: 20141212
  Serious: Yes (Other)
  Sender: FDA-Public Use
  Company Number: US-B.I. PHARMACEUTICALS,INC./RIDGEFIELD-2014-BI-17746BP

PATIENT
  Sex: Female
  Weight: 68 kg

DRUGS (3)
  1. TRADJENTA [Suspect]
     Indication: TYPE 2 DIABETES MELLITUS
     Route: 065
  2. GLIMERPIRIDE [Suspect]
     Indication: TYPE 2 DIABETES MELLITUS
     Route: 048
     Dates: start: 2012
  3. MEDICATION NOT FURTHER SPECIFIED [Concomitant]
     Indication: GASTRIC PH DECREASED
     Route: 065

REACTIONS (1)
  - Medullary thyroid cancer [Unknown]
